FAERS Safety Report 5146544-9 (Version None)
Quarter: 2006Q4

REPORT INFORMATION
  Report Type: 
  Country: None (occurrence: None)
  Receive Date: 20061109
  Receipt Date: 20061030
  Transmission Date: 20070319
  Serious: Yes (Hospitalization, Other)
  Sender: FDA-Public Use
  Company Number: US-JNJFOC-20060405832

PATIENT
  Sex: Female
  Weight: 62.6 kg

DRUGS (1)
  1. ORTHO EVRA [Suspect]
     Indication: CONTRACEPTION
     Route: 062

REACTIONS (22)
  - ABDOMINAL PAIN [None]
  - BLOOD ALKALINE PHOSPHATASE INCREASED [None]
  - BLOOD HOMOCYSTEINE DECREASED [None]
  - CHILLS [None]
  - CHOLANGITIS [None]
  - CHOLECYSTITIS [None]
  - CONSTIPATION [None]
  - DRUG INEFFECTIVE [None]
  - GASTRITIS [None]
  - HAEMATOCHEZIA [None]
  - HYPERCOAGULATION [None]
  - MURPHY'S SIGN POSITIVE [None]
  - NAUSEA [None]
  - NIGHT SWEATS [None]
  - PELVIC INFLAMMATORY DISEASE [None]
  - PLATELET COUNT INCREASED [None]
  - PROTEIN S DECREASED [None]
  - RED BLOOD CELL SEDIMENTATION RATE INCREASED [None]
  - SPLENIC INFARCTION [None]
  - THROMBOSIS [None]
  - VOMITING [None]
  - WHITE BLOOD CELL COUNT INCREASED [None]
